FAERS Safety Report 12080892 (Version 1)
Quarter: 2016Q1

REPORT INFORMATION
  Report Type: Spontaneous
  Country: US (occurrence: US)
  Receive Date: 20160216
  Receipt Date: 20160216
  Transmission Date: 20160526
  Serious: Yes (Hospitalization)
  Sender: FDA-Public Use
  Company Number: US-ASTRAZENECA-2016SE14306

PATIENT
  Age: 51 Year
  Sex: Female
  Weight: 84.6 kg

DRUGS (11)
  1. ALBUTEROL. [Concomitant]
     Active Substance: ALBUTEROL
     Dosage: AS REQUIRED
  2. GABAPENTIN. [Concomitant]
     Active Substance: GABAPENTIN
  3. GLYBURIDE. [Concomitant]
     Active Substance: GLYBURIDE
  4. HYDROCODONE [Concomitant]
     Active Substance: HYDROCODONE
     Dosage: 5 Q 4 HOURS AS REQUIRED
  5. PEPCID [Concomitant]
     Active Substance: FAMOTIDINE
     Dosage: 800/26.6 THREE TIMES A DAY
  6. NORVASC [Concomitant]
     Active Substance: AMLODIPINE BESYLATE
  7. FARXIGA [Suspect]
     Active Substance: DAPAGLIFLOZIN PROPANEDIOL
     Indication: TYPE 2 DIABETES MELLITUS
     Route: 048
  8. FENOFIBRATE. [Concomitant]
     Active Substance: FENOFIBRATE
  9. IBUPROFEN. [Concomitant]
     Active Substance: IBUPROFEN
     Dosage: 800/26.6 THREE TIMES A DAY
  10. KOMBIGLYZE XR [Concomitant]
     Active Substance: METFORMIN HYDROCHLORIDE\SAXAGLIPTIN HYDROCHLORIDE
     Dosage: 2.5/1000 MG DAILY
  11. METOPROLOL. [Concomitant]
     Active Substance: METOPROLOL

REACTIONS (1)
  - Diabetic ketoacidosis [Unknown]

NARRATIVE: CASE EVENT DATE: 20151008
